FAERS Safety Report 4783168-7 (Version None)
Quarter: 2005Q3

REPORT INFORMATION
  Report Type: 
  Country: None (occurrence: None)
  Receive Date: 20050929
  Receipt Date: 20050927
  Transmission Date: 20060218
  Serious: Yes (Other)
  Sender: FDA-Public Use
  Company Number: US-GLAXOSMITHKLINE-A0576037A

PATIENT
  Sex: Female

DRUGS (1)
  1. PAXIL [Suspect]
     Indication: DRUG USE FOR UNKNOWN INDICATION
     Route: 048

REACTIONS (8)
  - ANXIETY [None]
  - DRUG WITHDRAWAL SYNDROME [None]
  - EXTRASYSTOLES [None]
  - HEADACHE [None]
  - HYPERTENSION [None]
  - SENSATION OF PRESSURE [None]
  - SUICIDAL IDEATION [None]
  - TREMOR [None]
